FAERS Safety Report 7939483-9 (Version None)
Quarter: 2011Q4

REPORT INFORMATION
  Report Type: 
  Country: None (occurrence: None)
  Receive Date: 20111125
  Receipt Date: 20111116
  Transmission Date: 20120403
  Serious: Yes (Hospitalization, Other)
  Sender: FDA-Public Use
  Company Number: US-BAYER-2011-056562

PATIENT
  Age: 22 Year
  Sex: Female
  Weight: 81.633 kg

DRUGS (7)
  1. YASMIN [Suspect]
     Indication: ORAL CONTRACEPTION
     Dosage: UNK
     Dates: start: 20040401, end: 20080201
  2. DARVOCET [Concomitant]
  3. ZYRTEC-D 12 HOUR [Concomitant]
  4. MULTI-VITAMIN [Concomitant]
  5. CLARITIN [Concomitant]
     Dosage: 10 MG, PRN
  6. PRILOSEC [Concomitant]
  7. PHENTERMINE [Concomitant]
     Dosage: 30 MG, UNK

REACTIONS (2)
  - GALLBLADDER NON-FUNCTIONING [None]
  - CHOLECYSTITIS CHRONIC [None]
